FAERS Safety Report 5683835-7 (Version None)
Quarter: 2008Q1

REPORT INFORMATION
  Report Type: 
  Country: None (occurrence: None)
  Receive Date: 20080326
  Receipt Date: 20070625
  Transmission Date: 20080703
  Serious: Yes (Death)
  Sender: FDA-Public Use
  Company Number: 6035024

PATIENT
  Age: 86 Year
  Sex: Female

DRUGS (1)
  1. GLUCOPHAGE [Suspect]
     Indication: DIABETES MELLITUS
     Dosage: 850 MG (850 MG, 1 IN 1 D) ORAL
     Route: 048

REACTIONS (2)
  - HYPOTENSION [None]
  - METABOLIC ACIDOSIS [None]
